FAERS Safety Report 6535660-2 (Version None)
Quarter: 2010Q1

REPORT INFORMATION
  Report Type: 
  Country: None (occurrence: None)
  Receive Date: 20100113
  Receipt Date: 20100108
  Transmission Date: 20100710
  Serious: Yes (Other)
  Sender: FDA-Public Use
  Company Number: CHPA2010US00750

PATIENT
  Sex: Male

DRUGS (1)
  1. THERAFLU WARMING RELIEF COLD + CHEST CONG (NCH) [Suspect]
     Dosage: UNK, UNK
     Route: 048

REACTIONS (3)
  - FEELING ABNORMAL [None]
  - HALLUCINATION, VISUAL [None]
  - PARAESTHESIA [None]
